FAERS Safety Report 8022676-2 (Version None)
Quarter: 2012Q1

REPORT INFORMATION
  Report Type: 
  Country: None (occurrence: None)
  Receive Date: 20120104
  Receipt Date: 20120103
  Transmission Date: 20120608
  Serious: Yes (Other)
  Sender: FDA-Public Use
  Company Number: US-ROCHE-1026982

PATIENT

DRUGS (3)
  1. ACTONEL [Suspect]
     Indication: OSTEOPOROSIS
     Dates: start: 19990501, end: 20101001
  2. FOSAMAX [Suspect]
     Indication: OSTEOPOROSIS
     Dates: start: 19990501, end: 20101001
  3. BONIVA [Suspect]
     Indication: OSTEOPOROSIS
     Dates: start: 19990501, end: 20101001

REACTIONS (2)
  - EMOTIONAL DISTRESS [None]
  - FEMUR FRACTURE [None]
